FAERS Safety Report 7148476-3 (Version None)
Quarter: 2010Q4

REPORT INFORMATION
  Report Type: 
  Country: None (occurrence: None)
  Receive Date: 20101209
  Receipt Date: 20101202
  Transmission Date: 20110411
  Serious: Yes (Other)
  Sender: FDA-Public Use
  Company Number: PHHY2010US74095

PATIENT
  Sex: Female

DRUGS (1)
  1. EXTAVIA [Suspect]
     Indication: MULTIPLE SCLEROSIS
     Dosage: 0.1875  MG, QOD
     Route: 058
     Dates: start: 20100928

REACTIONS (8)
  - CONTUSION [None]
  - DYSSTASIA [None]
  - GAIT DISTURBANCE [None]
  - HYPOKINESIA [None]
  - INJECTION SITE DISCOLOURATION [None]
  - INJECTION SITE PAIN [None]
  - INJECTION SITE SWELLING [None]
  - SPINAL DISORDER [None]
